FAERS Safety Report 18855483 (Version 2)
Quarter: 2021Q1

REPORT INFORMATION
  Report Type: Report from Study
  Country: US (occurrence: US)
  Receive Date: 20210206
  Receipt Date: 20210211
  Transmission Date: 20210420
  Serious: Yes (Hospitalization)
  Sender: FDA-Public Use
  Company Number: US-ROCHE-2755804

PATIENT
  Age: 75 Year
  Sex: Male
  Weight: 93.7 kg

DRUGS (24)
  1. FLUTICASONE PROPIONATE. [Concomitant]
     Active Substance: FLUTICASONE PROPIONATE
  2. STOOL SOFTENER (DOCUSATE) [Concomitant]
     Active Substance: DOCUSATE
  3. LUPRON [Concomitant]
     Active Substance: LEUPROLIDE ACETATE
  4. PROLIA [Concomitant]
     Active Substance: DENOSUMAB
  5. LOSARTAN POTASSIUM. [Concomitant]
     Active Substance: LOSARTAN POTASSIUM
  6. LEVAQUIN [Concomitant]
     Active Substance: LEVOFLOXACIN
  7. IMODIUM [Concomitant]
     Active Substance: LOPERAMIDE HYDROCHLORIDE
  8. FLOMAX [Concomitant]
     Active Substance: TAMSULOSIN HYDROCHLORIDE
  9. XL184 [Suspect]
     Active Substance: CABOZANTINIB
     Indication: HORMONE-REFRACTORY PROSTATE CANCER
     Dosage: 14/DEC/2020, RECEIVED MOST RECENT DOSE
     Route: 048
     Dates: start: 20200518
  10. AMLODIPINE BESILATE [Concomitant]
     Active Substance: AMLODIPINE BESYLATE
  11. METAMUCIL [Concomitant]
     Active Substance: PLANTAGO SEED
  12. TUMS [Concomitant]
     Active Substance: CALCIUM CARBONATE
  13. IBUPROFEN. [Concomitant]
     Active Substance: IBUPROFEN
  14. ATEZOLIZUMAB. [Suspect]
     Active Substance: ATEZOLIZUMAB
     Indication: HORMONE-REFRACTORY PROSTATE CANCER
     Dosage: 11/DEC/2020, RECEIVED MOST RECENT DOSE
     Route: 041
     Dates: start: 20200518
  15. ATORVASTATIN CALCIUM. [Concomitant]
     Active Substance: ATORVASTATIN CALCIUM
  16. METFORMIN HYDROCHLORIDE. [Concomitant]
     Active Substance: METFORMIN HYDROCHLORIDE
  17. NEULASTA [Concomitant]
     Active Substance: PEGFILGRASTIM
  18. XARELTO [Concomitant]
     Active Substance: RIVAROXABAN
  19. PANTOPRAZOLE SODIUM SESQUIHYDRATE [Concomitant]
     Active Substance: PANTOPRAZOLE SODIUM
  20. MIRALAX [Concomitant]
     Active Substance: POLYETHYLENE GLYCOL 3350
  21. LOVENOX [Concomitant]
     Active Substance: ENOXAPARIN SODIUM
  22. FAMOTIDINE. [Concomitant]
     Active Substance: FAMOTIDINE
  23. ZITHROMAX [Concomitant]
     Active Substance: AZITHROMYCIN DIHYDRATE
  24. ZOFRAN [Concomitant]
     Active Substance: ONDANSETRON HYDROCHLORIDE

REACTIONS (4)
  - Pleural effusion [Unknown]
  - Atrial fibrillation [Recovered/Resolved]
  - Acute respiratory failure [Unknown]
  - Dyspnoea [Recovered/Resolved]

NARRATIVE: CASE EVENT DATE: 20201222
